FAERS Safety Report 8907356 (Version 1)
Quarter: 2012Q4

REPORT INFORMATION
  Report Type: 
  Country: JP (occurrence: JP)
  Receive Date: 20121114
  Receipt Date: 20121114
  Transmission Date: 20130627
  Serious: Yes (Other)
  Sender: FDA-Public Use
  Company Number: JP-SANOFI-AVENTIS-2012SA078082

PATIENT
  Age: 20 Year
  Sex: Female

DRUGS (2)
  1. ALLEGRA [Suspect]
     Indication: ALLERGIC RHINITIS
     Route: 048
     Dates: start: 201209, end: 201210
  2. TEGRETOL [Concomitant]
     Indication: EPILEPSY

REACTIONS (2)
  - Epilepsy [Recovered/Resolved]
  - Drug level decreased [Unknown]
